FAERS Safety Report 5658268-X (Version None)
Quarter: 2008Q1

REPORT INFORMATION
  Report Type: 
  Country: None (occurrence: None)
  Receive Date: 20080310
  Receipt Date: 20070130
  Transmission Date: 20080703
  Serious: No
  Sender: FDA-Public Use
  Company Number: US-BAYER-200710204BCC

PATIENT
  Age: 44 Year
  Sex: Female
  Weight: 64 kg

DRUGS (1)
  1. ALEVE [Suspect]
     Indication: ARTHRALGIA
     Dosage: TOTAL DAILY DOSE: 220 MG  UNIT DOSE: 220 MG
     Route: 048
     Dates: start: 20070113

REACTIONS (5)
  - DYSPEPSIA [None]
  - FOREIGN BODY TRAUMA [None]
  - MUSCULOSKELETAL CHEST PAIN [None]
  - PAIN [None]
  - SENSATION OF FOREIGN BODY [None]
